FAERS Safety Report 9474898 (Version 2)
Quarter: 2013Q3

REPORT INFORMATION
  Report Type: Spontaneous
  Country: US (occurrence: US)
  Receive Date: 20130823
  Receipt Date: 20130823
  Transmission Date: 20140515
  Serious: Yes (Other)
  Sender: FDA-Public Use
  Company Number: US-ELI_LILLY_AND_COMPANY-US201304006126

PATIENT
  Sex: Female
  Weight: 73.47 kg

DRUGS (4)
  1. EVISTA [Suspect]
     Dosage: 60 MG, UNKNOWN
     Dates: start: 201110, end: 201304
  2. TAMOXIFEN [Concomitant]
     Indication: BREAST CANCER
  3. ASPIRIN [Concomitant]
     Dosage: 81 MG, PRN
  4. TRAMADOL [Concomitant]
     Dosage: 50 MG, UNKNOWN

REACTIONS (3)
  - Femur fracture [Recovering/Resolving]
  - Tibia fracture [Recovering/Resolving]
  - Rib fracture [Unknown]
